FAERS Safety Report 4547390-7 (Version None)
Quarter: 2005Q1

REPORT INFORMATION
  Report Type: 
  Country: None (occurrence: None)
  Receive Date: 20050107
  Receipt Date: 20041213
  Transmission Date: 20050727
  Serious: Yes (Hospitalization)
  Sender: FDA-Public Use
  Company Number: ES-ROCHE-388988

PATIENT
  Age: 42 Year
  Sex: Male

DRUGS (10)
  1. DACLIZUMAB [Suspect]
     Route: 042
     Dates: start: 20041204
  2. MYCOPHENOLATE MOFETIL [Suspect]
     Route: 048
     Dates: start: 20041203
  3. SIROLIMUS [Suspect]
     Route: 065
     Dates: start: 20041204
  4. SIROLIMUS [Suspect]
     Route: 065
     Dates: start: 20041216
  5. PREDNISONA [Suspect]
     Route: 048
  6. DOBUTAMINE HCL [Concomitant]
     Dates: start: 20041204
  7. DOPAMINE HCL [Concomitant]
     Dosage: UNIT = ML/H
     Dates: start: 20041205
  8. OMEPRAZOLE [Concomitant]
     Dosage: UNIT = ML/H
     Dates: start: 20041204
  9. SEGURIL [Concomitant]
     Dates: start: 20041204
  10. ALEUDRINA [Concomitant]
     Dosage: UNIT = ML/H
     Dates: start: 20041204

REACTIONS (3)
  - BACTERAEMIA [None]
  - PNEUMONIA [None]
  - WOUND DEHISCENCE [None]
